FAERS Safety Report 17203570 (Version 1)
Quarter: 2019Q4

REPORT INFORMATION
  Report Type: Spontaneous
  Country: US (occurrence: US)
  Receive Date: 20191226
  Receipt Date: 20191226
  Transmission Date: 20200122
  Serious: No
  Sender: FDA-Public Use
  Company Number: US-CATALYST PHARMACEUTICALS, INC-2019CAT00377

PATIENT
  Age: 34 Year
  Sex: Male
  Weight: 90.7 kg

DRUGS (1)
  1. FIRDAPSE [Suspect]
     Active Substance: AMIFAMPRIDINE
     Indication: MYASTHENIC SYNDROME
     Dosage: 10 MG, UP TO 6X/DAY (EVERY 4 HOURS)
     Route: 048
     Dates: start: 201901

REACTIONS (4)
  - Nasopharyngitis [Recovered/Resolved]
  - Sinus headache [Recovered/Resolved]
  - Nasal congestion [Recovered/Resolved]
  - Cough [Recovered/Resolved]

NARRATIVE: CASE EVENT DATE: 201908
